FAERS Safety Report 4810430-1 (Version None)
Quarter: 2005Q4

REPORT INFORMATION
  Report Type: 
  Country: None (occurrence: None)
  Receive Date: 20051025
  Receipt Date: 20051025
  Transmission Date: 20060501
  Serious: Yes (Hospitalization)
  Sender: FDA-Public Use
  Company Number: None

PATIENT
  Age: 58 Year
  Sex: Male

DRUGS (14)
  1. GATIFLOXACIN [Suspect]
     Dosage: 200MG IV Q24H
     Route: 042
  2. ACETYLCYSTEINE SOLN [Concomitant]
  3. ALBUTEROL SULFATE AND IPRATROPIUM BROMIDE [Concomitant]
  4. ASPIRIN [Concomitant]
  5. CALCIUM ACETATE [Concomitant]
  6. CLINDAMYCIN [Concomitant]
  7. FERROUS SULFATE TAB [Concomitant]
  8. GATIFLOXACIN [Concomitant]
  9. METHADONE HCL [Concomitant]
  10. MULTI-VITAMIN [Concomitant]
  11. OXYCODONE AND ACETAMINOPHEN [Concomitant]
  12. PROMETHAZINE HCL [Concomitant]
  13. SERTRALINE HCL [Concomitant]
  14. SODIUM CHLORIDE [Concomitant]

REACTIONS (4)
  - DRUG CLEARANCE DECREASED [None]
  - ELECTROCARDIOGRAM QT PROLONGED [None]
  - RENAL FAILURE ACUTE [None]
  - VENTRICULAR TACHYCARDIA [None]
